FAERS Safety Report 5975970-0 (Version None)
Quarter: 2008Q4

REPORT INFORMATION
  Report Type: 
  Country: None (occurrence: None)
  Receive Date: 20081124
  Receipt Date: 20080530
  Transmission Date: 20090506
  Serious: Yes (Other)
  Sender: FDA-Public Use
  Company Number: 48885

PATIENT
  Age: 75 Year
  Sex: Male
  Weight: 109.7705 kg

DRUGS (1)
  1. AMIODARONE HCL [Suspect]
     Dates: start: 20080101

REACTIONS (1)
  - ARRHYTHMIA [None]
